FAERS Safety Report 4817765-7 (Version None)
Quarter: 2005Q3

REPORT INFORMATION
  Report Type: 
  Country: None (occurrence: None)
  Receive Date: 20050929
  Receipt Date: 20050810
  Transmission Date: 20060218
  Serious: No
  Sender: FDA-Public Use
  Company Number: 05P-163-0308008-00

PATIENT
  Age: 55 Year
  Sex: Female
  Weight: 47.6277 kg

DRUGS (9)
  1. HUMIRA [Suspect]
     Indication: RHEUMATOID ARTHRITIS
     Dosage: 40 MG, 1 IN 2 WK, SUBCUTANEOUS
     Route: 058
     Dates: start: 20030101
  2. INSULIN [Concomitant]
  3. TRAZODONE HCL [Concomitant]
  4. QUINAPRIL HCL [Concomitant]
  5. PREDNISONE [Concomitant]
  6. HYDROCHLOROTHIAZIDE [Concomitant]
  7. OXYCODONE HCL [Concomitant]
  8. PROVELLA-14 [Concomitant]
  9. ALLEGRA [Concomitant]

REACTIONS (2)
  - ANOREXIA [None]
  - WEIGHT DECREASED [None]
